FAERS Safety Report 18311958 (Version 1)
Quarter: 2020Q3

REPORT INFORMATION
  Report Type: Spontaneous
  Country: US (occurrence: US)
  Receive Date: 20200924
  Receipt Date: 20200924
  Transmission Date: 20201103
  Serious: Yes (Other)
  Sender: FDA-Public Use
  Company Number: None

PATIENT
  Age: 69 Year
  Sex: Male

DRUGS (1)
  1. AVONEX PEN [Suspect]
     Active Substance: INTERFERON BETA-1A
     Indication: MULTIPLE SCLEROSIS
     Dosage: ?          OTHER DOSE:300MCG/0.5ML;?
     Route: 030

REACTIONS (4)
  - Cough [None]
  - Gastrointestinal disorder [None]
  - Nasopharyngitis [None]
  - Fall [None]

NARRATIVE: CASE EVENT DATE: 20191230
